FAERS Safety Report 10029444 (Version 1)
Quarter: 2014Q1

REPORT INFORMATION
  Report Type: Spontaneous
  Country: US (occurrence: US)
  Receive Date: 20140322
  Receipt Date: 20140322
  Transmission Date: 20141002
  Serious: Yes (Other)
  Sender: FDA-Public Use
  Company Number: PHHY2014US032146

PATIENT
  Sex: 0

DRUGS (7)
  1. CISPLATIN [Suspect]
     Indication: EXTRAOCULAR RETINOBLASTOMA
  2. CARBOPLATIN [Suspect]
     Indication: EXTRAOCULAR RETINOBLASTOMA
  3. VINCRISTINE [Suspect]
     Indication: EXTRAOCULAR RETINOBLASTOMA
  4. ETOPOSIDE [Suspect]
     Indication: EXTRAOCULAR RETINOBLASTOMA
  5. TOPOTECAN [Suspect]
     Indication: EXTRAOCULAR RETINOBLASTOMA
  6. THIOTEPA [Suspect]
     Indication: EXTRAOCULAR RETINOBLASTOMA
  7. CYCLOPHOSPHAMIDE [Suspect]
     Indication: EXTRAOCULAR RETINOBLASTOMA

REACTIONS (3)
  - Deafness [Unknown]
  - Cataract [Unknown]
  - Visual impairment [Unknown]
